FAERS Safety Report 8014122-X (Version None)
Quarter: 2011Q4

REPORT INFORMATION
  Report Type: 
  Country: None (occurrence: None)
  Receive Date: 20111229
  Receipt Date: 20111227
  Transmission Date: 20120403
  Serious: No
  Sender: FDA-Public Use
  Company Number: US-BAYER-2011-124182

PATIENT

DRUGS (3)
  1. PERCOCET [Concomitant]
     Indication: TOOTHACHE
  2. ALEVE (CAPLET) [Suspect]
     Indication: TOOTHACHE
  3. IBUPROFEN (ADVIL) [Concomitant]
     Indication: TOOTHACHE

REACTIONS (1)
  - TOOTHACHE [None]
